FAERS Safety Report 25616709 (Version 1)
Quarter: 2025Q3

REPORT INFORMATION
  Report Type: Spontaneous
  Country: EU (occurrence: EU)
  Receive Date: 20250729
  Receipt Date: 20250729
  Transmission Date: 20251020
  Serious: Yes (Other)
  Sender: PHARMOBEDIENT CONSULTING, LLC
  Company Number: EU-Norvium Bioscience LLC-080388

PATIENT
  Age: 6 Year
  Sex: Female

DRUGS (2)
  1. CYTARABINE [Suspect]
     Active Substance: CYTARABINE
     Indication: Acute myeloid leukaemia
     Dosage: FOR 8 DAYS
  2. MITOXANTRONE [Concomitant]
     Active Substance: MITOXANTRONE HYDROCHLORIDE
     Indication: Acute myeloid leukaemia

REACTIONS (10)
  - Febrile neutropenia [Unknown]
  - Uveitis [Recovered/Resolved]
  - Mucosal inflammation [Unknown]
  - Leukopenia [Unknown]
  - Thrombocytopenia [Unknown]
  - Lymphopenia [Unknown]
  - Anaemia [Unknown]
  - Tooth loss [Unknown]
  - Iris adhesions [Recovered/Resolved]
  - Retinitis [Recovered/Resolved]
